FAERS Safety Report 8248738-2 (Version None)
Quarter: 2012Q1

REPORT INFORMATION
  Report Type: 
  Country: None (occurrence: None)
  Receive Date: 20120331
  Receipt Date: 20120326
  Transmission Date: 20120608
  Serious: Yes (Other)
  Sender: FDA-Public Use
  Company Number: PHEH2012US006749

PATIENT
  Sex: Female

DRUGS (4)
  1. RECLAST [Suspect]
     Dosage: 5 MG/100 ML, ONCE A YEAR
     Route: 042
     Dates: start: 20111101
  2. VITAMIN D [Concomitant]
  3. CALCIUM CARBONATE [Concomitant]
  4. ADVAIR DISKUS 100/50 [Suspect]
     Dosage: 1 DF, 250/50
     Dates: start: 20120322, end: 20120325

REACTIONS (6)
  - FALL [None]
  - RIB FRACTURE [None]
  - PNEUMONIA [None]
  - DYSPNOEA [None]
  - PARAESTHESIA [None]
  - NERVOUSNESS [None]
